FAERS Safety Report 14307764 (Version 2)
Quarter: 2018Q3

REPORT INFORMATION
  Report Type: Spontaneous
  Country: AU (occurrence: AU)
  Receive Date: 20171220
  Receipt Date: 20180925
  Transmission Date: 20181010
  Serious: Yes (Death)
  Sender: FDA-Public Use
  Company Number: AU-ACTELION-A-CH2017-164141

PATIENT
  Age: 53 Year
  Sex: Female

DRUGS (2)
  1. OPSUMIT [Suspect]
     Active Substance: MACITENTAN
     Indication: PULMONARY ARTERIAL HYPERTENSION
     Dosage: 10 MG, UNK
     Route: 048
     Dates: start: 20141216
  2. SILDENAFIL. [Suspect]
     Active Substance: SILDENAFIL
     Indication: PULMONARY ARTERIAL HYPERTENSION
     Dosage: 25 MG, TID
     Route: 048
     Dates: start: 20081023

REACTIONS (2)
  - Disease progression [Fatal]
  - Pulmonary arterial hypertension [Fatal]

NARRATIVE: CASE EVENT DATE: 20171210
